FAERS Safety Report 24829586 (Version 1)
Quarter: 2025Q1

REPORT INFORMATION
  Report Type: Report from Study
  Country: US (occurrence: US)
  Receive Date: 20250110
  Receipt Date: 20250110
  Transmission Date: 20250408
  Serious: Yes (Hospitalization)
  Sender: ABBVIE
  Company Number: US-ABBVIE-6076321

PATIENT
  Sex: Female

DRUGS (1)
  1. RINVOQ [Suspect]
     Active Substance: UPADACITINIB
     Indication: Product used for unknown indication
     Route: 048
     Dates: start: 20241107, end: 202501

REACTIONS (6)
  - Haemoglobin abnormal [Not Recovered/Not Resolved]
  - Diarrhoea [Recovering/Resolving]
  - Therapeutic product effect incomplete [Unknown]
  - Pain [Recovering/Resolving]
  - Inflammation [Recovering/Resolving]
  - Rectal haemorrhage [Not Recovered/Not Resolved]
